FAERS Safety Report 4654268-7 (Version None)
Quarter: 2005Q2

REPORT INFORMATION
  Report Type: 
  Country: None (occurrence: None)
  Receive Date: 20050404
  Receipt Date: 20041210
  Transmission Date: 20051028
  Serious: No
  Sender: FDA-Public Use
  Company Number: USA041285917

PATIENT
  Age: 68 Year
  Sex: Male

DRUGS (2)
  1. CYMBALTA [Suspect]
     Indication: POST HERPETIC NEURALGIA
  2. NEURONTIN [Concomitant]

REACTIONS (2)
  - ANORGASMIA [None]
  - EMOTIONAL DISTRESS [None]
